FAERS Safety Report 16032357 (Version 1)
Quarter: 2019Q1

REPORT INFORMATION
  Report Type: Spontaneous
  Country: US (occurrence: US)
  Receive Date: 20190304
  Receipt Date: 20190304
  Transmission Date: 20190418
  Serious: No
  Sender: FDA-Public Use
  Company Number: US-BRISTOL-MYERS SQUIBB COMPANY-BMS-2019-022323

PATIENT
  Sex: Female
  Weight: 61.2 kg

DRUGS (3)
  1. LIPITOR [Concomitant]
     Active Substance: ATORVASTATIN CALCIUM
     Indication: PRODUCT USED FOR UNKNOWN INDICATION
     Dosage: UNK
     Route: 065
  2. ELIQUIS [Suspect]
     Active Substance: APIXABAN
     Indication: PULMONARY EMBOLISM
     Dosage: 5 MG, BID
     Route: 048
  3. ELIQUIS [Suspect]
     Active Substance: APIXABAN
     Indication: DEEP VEIN THROMBOSIS
     Route: 065

REACTIONS (15)
  - Dyspnoea [Unknown]
  - Alopecia [Unknown]
  - Groin pain [Unknown]
  - Contusion [Unknown]
  - Eye swelling [Unknown]
  - Asthenia [Unknown]
  - Epistaxis [Unknown]
  - Chest pain [Unknown]
  - Weight decreased [Unknown]
  - Swelling face [Unknown]
  - Dizziness [Unknown]
  - Skin exfoliation [Unknown]
  - Wheezing [Unknown]
  - Pruritus [Unknown]
  - Fatigue [Unknown]
